FAERS Safety Report 6941068-8 (Version None)
Quarter: 2010Q3

REPORT INFORMATION
  Report Type: 
  Country: None (occurrence: None)
  Receive Date: 20100824
  Receipt Date: 20100824
  Transmission Date: 20110219
  Serious: Yes (Hospitalization)
  Sender: FDA-Public Use
  Company Number: None

PATIENT
  Age: 38 Year
  Sex: Male
  Weight: 93 kg

DRUGS (6)
  1. JANUVIA [Suspect]
     Indication: DIABETES MELLITUS
     Dosage: 100MG ONCE DAILY PO, 3-4 MONTHS
     Route: 048
  2. GEODON [Concomitant]
  3. CYMBALTA [Concomitant]
  4. LAMICTAL [Concomitant]
  5. LANTUS [Concomitant]
  6. HYDROCHLOROTHIAZIDE [Concomitant]

REACTIONS (2)
  - DIABETIC KETOACIDOSIS [None]
  - PANCREATITIS ACUTE [None]
